FAERS Safety Report 12492954 (Version 5)
Quarter: 2016Q4

REPORT INFORMATION
  Report Type: Spontaneous
  Country: US (occurrence: US)
  Receive Date: 20160623
  Receipt Date: 20161207
  Transmission Date: 20170207
  Serious: Yes (Hospitalization)
  Sender: FDA-Public Use
  Company Number: US-ACTELION-A-US2016-138098

PATIENT
  Age: 8 Month
  Sex: Female

DRUGS (16)
  1. BUDESONIDE. [Concomitant]
     Active Substance: BUDESONIDE
  2. CHLOROTHIAZIDE. [Concomitant]
     Active Substance: CHLOROTHIAZIDE
  3. MELATONIN [Concomitant]
     Active Substance: MELATONIN
  4. PHENOBARBITAL. [Concomitant]
     Active Substance: PHENOBARBITAL
  5. POTASSIUM CHLORIDE. [Concomitant]
     Active Substance: POTASSIUM CHLORIDE
  6. TRACLEER [Suspect]
     Active Substance: BOSENTAN
     Indication: PULMONARY HYPERTENSION
     Dosage: 62.5 MG, BID
     Route: 048
  7. REMODULIN [Concomitant]
     Active Substance: TREPROSTINIL
     Dosage: UNK
     Route: 058
  8. HYDROCORTISONE. [Concomitant]
     Active Substance: HYDROCORTISONE
  9. TRACLEER [Suspect]
     Active Substance: BOSENTAN
     Dosage: 15.2 MG, BID
     Route: 048
  10. MAGNESIUM HYDROXIDE. [Concomitant]
     Active Substance: MAGNESIUM HYDROXIDE
  11. FUROSEMIDE. [Concomitant]
     Active Substance: FUROSEMIDE
  12. VELETRI [Suspect]
     Active Substance: EPOPROSTENOL
     Indication: PULMONARY HYPERTENSION
     Route: 042
  13. REMODULIN [Concomitant]
     Active Substance: TREPROSTINIL
     Dosage: 60 NG/KG, PER MIN
     Route: 042
  14. SPIRONOLACTONE. [Concomitant]
     Active Substance: SPIRONOLACTONE
  15. LEVALBUTEROL. [Concomitant]
     Active Substance: LEVALBUTEROL
  16. SILDENAFIL. [Concomitant]
     Active Substance: SILDENAFIL
     Dosage: 9 MG, Q8HRS

REACTIONS (5)
  - Liver function test increased [Unknown]
  - Alanine aminotransferase increased [Unknown]
  - Cardiopulmonary failure [Recovering/Resolving]
  - Pulmonary hypertension [Recovering/Resolving]
  - Aspartate aminotransferase increased [Unknown]

NARRATIVE: CASE EVENT DATE: 20160504
